FAERS Safety Report 9184924 (Version 1)
Quarter: 2013Q1

REPORT INFORMATION
  Report Type: Spontaneous
  Country: US (occurrence: US)
  Receive Date: 20130325
  Receipt Date: 20130325
  Transmission Date: 20140127
  Serious: No
  Sender: FDA-Public Use
  Company Number: US-BRISTOL-MYERS SQUIBB COMPANY-16536468

PATIENT
  Age: 71 Year
  Sex: Male
  Weight: 78.91 kg

DRUGS (1)
  1. ERBITUX [Suspect]
     Indication: COLON CANCER
     Dosage: NO OF TREATMENTS: 3

REACTIONS (2)
  - Skin disorder [Unknown]
  - Rash erythematous [Recovered/Resolved]
